FAERS Safety Report 5350037-3 (Version None)
Quarter: 2007Q2

REPORT INFORMATION
  Report Type: 
  Country: None (occurrence: None)
  Receive Date: 20070510
  Receipt Date: 20061005
  Transmission Date: 20071010
  Serious: Yes (Hospitalization)
  Sender: FDA-Public Use
  Company Number: 2006S1000214

PATIENT
  Age: 48 Year
  Sex: Male

DRUGS (14)
  1. CUBICIN [Suspect]
     Indication: EXTRADURAL ABSCESS
     Dosage: 6 MG/KG; Q24H;
     Dates: start: 20060919
  2. CUBICIN [Suspect]
     Indication: INTERVERTEBRAL DISCITIS
     Dosage: 6 MG/KG; Q24H;
     Dates: start: 20060919
  3. CUBICIN [Suspect]
     Indication: STAPHYLOCOCCAL INFECTION
     Dosage: 6 MG/KG; Q24H;
     Dates: start: 20060919
  4. HALOPERIDOL [Concomitant]
  5. QUETIAPINE [Concomitant]
  6. GABAPENTIN [Concomitant]
  7. OXANDROLONE [Concomitant]
  8. SYNTHROID [Concomitant]
  9. METOPROLOL SUCCINATE [Concomitant]
  10. ENOXAPARIN SODIUM [Concomitant]
  11. MORPHINE [Concomitant]
  12. OXYCODONE HCL [Concomitant]
  13. VANCOMYCIN HCL [Concomitant]
  14. GENTAMICIN [Concomitant]

REACTIONS (1)
  - ANAEMIA [None]
